FAERS Safety Report 9011712 (Version 1)
Quarter: 2013Q1

REPORT INFORMATION
  Report Type: Spontaneous
  Country: US (occurrence: US)
  Receive Date: 20130114
  Receipt Date: 20130114
  Transmission Date: 20140127
  Serious: Yes (Other)
  Sender: FDA-Public Use
  Company Number: US-009507513-0909USA03216

PATIENT
  Age: 29 Year
  Sex: Female
  Weight: 77.11 kg

DRUGS (1)
  1. SINGULAIR [Suspect]
     Indication: ASTHMA
     Dosage: 10 MG, DAILY
     Route: 048
     Dates: start: 200709

REACTIONS (4)
  - Therapeutic response unexpected [Unknown]
  - Suicidal ideation [Unknown]
  - Toothache [Unknown]
  - Depression [Unknown]
